FAERS Safety Report 11684242 (Version 1)
Quarter: 2015Q4

REPORT INFORMATION
  Report Type: Spontaneous
  Country: US (occurrence: None)
  Receive Date: 20151029
  Receipt Date: 20151029
  Transmission Date: 20160304
  Serious: Yes (Other)
  Sender: FDA-Public Use
  Company Number: US-MDT-ADR-2015-02049

PATIENT
  Age: 62 Year
  Sex: Female

DRUGS (2)
  1. MORPHINE INTRATHECAL 2 MG/ML [Suspect]
     Active Substance: MORPHINE
     Indication: SPINAL PAIN
     Dosage: 0.2708 MG/DAY
  2. COMPOUNDED BACLOFEN INTRATHECAL 320 MCG/ML [Suspect]
     Active Substance: BACLOFEN
     Indication: SPINAL PAIN
     Dosage: 43.33 MCG/DAY

REACTIONS (1)
  - Drug withdrawal syndrome [None]
